FAERS Safety Report 16629418 (Version 1)
Quarter: 2019Q3

REPORT INFORMATION
  Report Type: Spontaneous
  Country: US (occurrence: US)
  Receive Date: 20190725
  Receipt Date: 20190725
  Transmission Date: 20191004
  Serious: Yes (Life-Threatening, Hospitalization, Other)
  Sender: FDA-Public Use
  Company Number: US-STRIDES ARCOLAB LIMITED-2019SP006320

PATIENT
  Age: 74 Year
  Sex: Female

DRUGS (18)
  1. OMNIPAQUE [Concomitant]
     Active Substance: IOHEXOL
     Indication: PRODUCT USED FOR UNKNOWN INDICATION
     Dosage: 1 ML, TOTAL
  2. DEXAMETHASONE. [Suspect]
     Active Substance: DEXAMETHASONE
     Indication: VERTEBRAL FORAMINAL STENOSIS
     Dosage: 10 MG, TOTAL,INTERLAMINAR ILESI AT THE C7-T1 VERTEBRAL SPACE
     Route: 008
  3. SODIUM CHLORIDE. [Concomitant]
     Active Substance: SODIUM CHLORIDE
     Indication: SPINAL OSTEOARTHRITIS
     Dosage: 1 ML, TOTAL,INTERLAMINAR ILESI AT THE C7-T1 VERTEBRAL SPACE
     Route: 008
  4. SODIUM CHLORIDE. [Concomitant]
     Active Substance: SODIUM CHLORIDE
     Indication: VERTEBRAL FORAMINAL STENOSIS
  5. LIDOCAINE. [Concomitant]
     Active Substance: LIDOCAINE
     Indication: VERTEBRAL FORAMINAL STENOSIS
     Dosage: 1 ML, TOTAL,AN INTERLAMINAR ILESI AT THE C7-T1 VERTEBRAL SPACE
     Route: 008
  6. CARBIDOPA AND LEVODOPA [Concomitant]
     Active Substance: CARBIDOPA\LEVODOPA
     Indication: PRODUCT USED FOR UNKNOWN INDICATION
     Dosage: 1 DF, EVERY 8 HOURS
     Route: 065
  7. PREGABALIN. [Concomitant]
     Active Substance: PREGABALIN
     Indication: VERTEBRAL FORAMINAL STENOSIS
     Dosage: UNK
     Route: 065
  8. PREGABALIN. [Concomitant]
     Active Substance: PREGABALIN
     Indication: SPINAL OSTEOARTHRITIS
  9. ATORVASTATIN [Concomitant]
     Active Substance: ATORVASTATIN
     Indication: PRODUCT USED FOR UNKNOWN INDICATION
     Dosage: 10 MG PER DAY
     Route: 065
  10. OMEGA-3-ACID ETHYL ESTERS. [Suspect]
     Active Substance: OMEGA-3-ACID ETHYL ESTERS
     Indication: PRODUCT USED FOR UNKNOWN INDICATION
     Dosage: 2000 MG PER DAY
     Route: 065
  11. DEXAMETHASONE. [Suspect]
     Active Substance: DEXAMETHASONE
     Indication: SPINAL OSTEOARTHRITIS
  12. LIDOCAINE. [Concomitant]
     Active Substance: LIDOCAINE
     Indication: SPINAL OSTEOARTHRITIS
     Dosage: 1 ML, TOTAL,INJECTED 5 MM LEFT OF MIDLINE IN THE C7-T1 INTERSPACE
     Route: 058
  13. LOSARTAN. [Concomitant]
     Active Substance: LOSARTAN
     Indication: PRODUCT USED FOR UNKNOWN INDICATION
     Dosage: 100 MG PER DAY
     Route: 065
  14. IBUPROFEN. [Suspect]
     Active Substance: IBUPROFEN
     Indication: SPINAL OSTEOARTHRITIS
     Dosage: 400 MG AS NECESSARY (TWICE DAILY)
     Route: 065
  15. CETIRIZINE [Concomitant]
     Active Substance: CETIRIZINE HYDROCHLORIDE
     Indication: PRODUCT USED FOR UNKNOWN INDICATION
     Dosage: 5 MG PER DAY
     Route: 065
  16. SELEGILINE [Concomitant]
     Active Substance: SELEGILINE
     Indication: PRODUCT USED FOR UNKNOWN INDICATION
     Dosage: 5 MG PER DAY
     Route: 065
  17. IBUPROFEN. [Suspect]
     Active Substance: IBUPROFEN
     Indication: VERTEBRAL FORAMINAL STENOSIS
  18. VITAMIN D2 + CALCIUM               /07511201/ [Concomitant]
     Indication: PRODUCT USED FOR UNKNOWN INDICATION
     Dosage: 1 DF PER DAY
     Route: 065

REACTIONS (7)
  - Injection site pain [Recovered/Resolved]
  - Nuchal rigidity [Recovered/Resolved]
  - Spinal epidural haematoma [Recovered/Resolved]
  - Tenderness [Recovered/Resolved]
  - Muscle spasms [Recovered/Resolved]
  - Joint stiffness [Recovered/Resolved]
  - Dysuria [Recovered/Resolved]
